FAERS Safety Report 13024104 (Version 1)
Quarter: 2016Q4

REPORT INFORMATION
  Report Type: Spontaneous
  Country: US (occurrence: US)
  Receive Date: 20161213
  Receipt Date: 20161213
  Transmission Date: 20170207
  Serious: Yes (Other)
  Sender: FDA-Public Use
  Company Number: US-MYLANLABS-2016M1054689

PATIENT

DRUGS (1)
  1. METHIMAZOLE. [Suspect]
     Active Substance: METHIMAZOLE
     Indication: THYROTOXIC CRISIS
     Route: 065

REACTIONS (1)
  - Pulmonary alveolar haemorrhage [Recovered/Resolved]
